FAERS Safety Report 13681961 (Version 1)
Quarter: 2017Q2

REPORT INFORMATION
  Report Type: Spontaneous
  Country: US (occurrence: US)
  Receive Date: 20170623
  Receipt Date: 20170623
  Transmission Date: 20170830
  Serious: No
  Sender: FDA-Public Use
  Company Number: None

PATIENT
  Age: 59 Year
  Sex: Female
  Weight: 81.65 kg

DRUGS (2)
  1. LEVOTHYROXINE SODIUM 112 MCG [Suspect]
     Active Substance: LEVOTHYROXINE SODIUM
     Indication: HYPOTHYROIDISM
     Route: 048
     Dates: start: 20170405, end: 20170610
  2. LEVOTHYROXINE SODIUM 112 MCG [Suspect]
     Active Substance: LEVOTHYROXINE SODIUM
     Indication: HYPOTHYROIDISM
     Route: 048
     Dates: start: 20161230, end: 20170404

REACTIONS (5)
  - Fatigue [None]
  - Product substitution issue [None]
  - Alopecia [None]
  - Pruritus [None]
  - Product quality issue [None]

NARRATIVE: CASE EVENT DATE: 20170424
